FAERS Safety Report 4505049-6 (Version None)
Quarter: 2004Q4

REPORT INFORMATION
  Report Type: 
  Country: None (occurrence: None)
  Receive Date: 20041117
  Receipt Date: 20041117
  Transmission Date: 20050328
  Serious: Yes (Hospitalization)
  Sender: FDA-Public Use
  Company Number: None

PATIENT
  Age: 57 Year
  Sex: Male

DRUGS (6)
  1. BACTRIM DS [Suspect]
     Indication: INFECTION
     Dosage: 1 TAB BID
     Dates: start: 20040720
  2. FELODIPINE [Concomitant]
  3. GEMFIBROZIL [Concomitant]
  4. OMEPRAZOLE [Concomitant]
  5. SALSALATE [Concomitant]
  6. TRAZODONE HCL [Concomitant]

REACTIONS (2)
  - RASH ERYTHEMATOUS [None]
  - RASH MACULO-PAPULAR [None]
